FAERS Safety Report 9520641 (Version 1)
Quarter: 2013Q3

REPORT INFORMATION
  Report Type: Spontaneous
  Country: ES (occurrence: ES)
  Receive Date: 20130913
  Receipt Date: 20130913
  Transmission Date: 20140515
  Serious: Yes (Other)
  Sender: FDA-Public Use
  Company Number: ES-PAR PHARMACEUTICAL, INC-2013SCPR007643

PATIENT
  Sex: 0

DRUGS (2)
  1. BUPROPION HCL XL [Suspect]
     Indication: DEPRESSION
     Dosage: 150 MG, / DAY,
     Route: 065
     Dates: start: 20120309
  2. BUPROPION HCL XL [Suspect]
     Dosage: 150 MG, GRADUALLY TERMINATING IN THE END
     Route: 065
     Dates: end: 20120427

REACTIONS (2)
  - Eosinophilia [Recovered/Resolved]
  - Myalgia [Recovered/Resolved]
